FAERS Safety Report 17029976 (Version 1)
Quarter: 2019Q4

REPORT INFORMATION
  Report Type: Spontaneous
  Country: US (occurrence: US)
  Receive Date: 20191114
  Receipt Date: 20191114
  Transmission Date: 20200122
  Serious: Yes (Death, Life-Threatening, Other)
  Sender: FDA-Public Use
  Company Number: US-SUN PHARMACEUTICAL INDUSTRIES LTD-2019R1-227189

PATIENT
  Age: 71 Year
  Sex: Female

DRUGS (1)
  1. PREDNISONE. [Suspect]
     Active Substance: PREDNISONE
     Indication: PRODUCT USED FOR UNKNOWN INDICATION
     Dosage: UNK
     Route: 048

REACTIONS (8)
  - Cardiovascular disorder [Fatal]
  - Septic shock [Fatal]
  - Multiple organ dysfunction syndrome [Fatal]
  - Osteomyelitis [Not Recovered/Not Resolved]
  - Psoas abscess [Not Recovered/Not Resolved]
  - Meningitis [Not Recovered/Not Resolved]
  - Extradural abscess [Not Recovered/Not Resolved]
  - Endocarditis [Not Recovered/Not Resolved]
